FAERS Safety Report 17812347 (Version 1)
Quarter: 2020Q2

REPORT INFORMATION
  Report Type: Spontaneous
  Country: US (occurrence: US)
  Receive Date: 20200521
  Receipt Date: 20200521
  Transmission Date: 20200714
  Serious: Yes (Other)
  Sender: FDA-Public Use
  Company Number: US-PFIZER INC-2020202350

PATIENT
  Sex: Female

DRUGS (1)
  1. AZULFIDINE [Suspect]
     Active Substance: SULFASALAZINE
     Indication: GASTROINTESTINAL DISORDER
     Dosage: UNK (504, 6 A DAY)

REACTIONS (1)
  - Dementia Alzheimer^s type [Unknown]
